FAERS Safety Report 12378546 (Version 1)
Quarter: 2016Q2

REPORT INFORMATION
  Report Type: Report from Study
  Country: US (occurrence: US)
  Receive Date: 20160517
  Receipt Date: 20160517
  Transmission Date: 20160815
  Serious: Yes (Hospitalization)
  Sender: FDA-Public Use
  Company Number: US-JNJFOC-20160514157

PATIENT
  Age: 72 Year
  Sex: Male

DRUGS (1)
  1. IMBRUVICA [Suspect]
     Active Substance: IBRUTINIB
     Indication: CHRONIC LYMPHOCYTIC LEUKAEMIA
     Route: 048
     Dates: start: 20160503, end: 20160505

REACTIONS (4)
  - Dehydration [Unknown]
  - Fatigue [Unknown]
  - Hypotension [Unknown]
  - Pyrexia [Unknown]

NARRATIVE: CASE EVENT DATE: 20160503
